FAERS Safety Report 14095460 (Version 1)
Quarter: 2017Q4

REPORT INFORMATION
  Report Type: Spontaneous
  Country: DE (occurrence: DE)
  Receive Date: 20171017
  Receipt Date: 20171017
  Transmission Date: 20180321
  Serious: Yes (Death, Other)
  Sender: FDA-Public Use
  Company Number: DE-ALEMBIC PHARMACUETICALS LIMITED-2017SCAL000803

PATIENT

DRUGS (3)
  1. MEMANTINE. [Concomitant]
     Active Substance: MEMANTINE
     Indication: PRODUCT USED FOR UNKNOWN INDICATION
     Dosage: 20 MG, QD
  2. LITHIUM CARBONATE. [Suspect]
     Active Substance: LITHIUM CARBONATE
     Indication: BIPOLAR DISORDER
     Dosage: 450 MG, BID
     Dates: start: 2011
  3. TAMSULOSIN [Concomitant]
     Active Substance: TAMSULOSIN
     Indication: BENIGN PROSTATIC HYPERPLASIA
     Dosage: 0.4 MG, QD

REACTIONS (10)
  - Parkinson^s disease [Recovering/Resolving]
  - Tremor [Recovering/Resolving]
  - Toxicity to various agents [Unknown]
  - Cerebral haemorrhage [Fatal]
  - Dementia Alzheimer^s type [Recovering/Resolving]
  - Muscle rigidity [Recovering/Resolving]
  - Hypokinesia [Recovering/Resolving]
  - Apraxia [Recovering/Resolving]
  - Cognitive disorder [Recovering/Resolving]
  - Disorientation [Recovering/Resolving]
